FAERS Safety Report 16677540 (Version 1)
Quarter: 2019Q3

REPORT INFORMATION
  Report Type: Spontaneous
  Country: GB (occurrence: GB)
  Receive Date: 20190807
  Receipt Date: 20190807
  Transmission Date: 20191004
  Serious: Yes (Other)
  Sender: FDA-Public Use
  Company Number: GB-PFIZER INC-2019331754

PATIENT
  Age: 63 Year
  Sex: Female
  Weight: 67.12 kg

DRUGS (3)
  1. DOXYCYCLINE MONOHYDRATE [Suspect]
     Active Substance: DOXYCYCLINE
     Indication: ARTHROPOD BITE
     Dosage: 200 MG, DAILY
     Route: 048
     Dates: start: 20190606, end: 20190619
  2. HYLO-FORTE [Concomitant]
     Active Substance: HYALURONATE SODIUM
     Dosage: UNK
  3. ESTRADIOL. [Concomitant]
     Active Substance: ESTRADIOL
     Dosage: 10 UG, UNK

REACTIONS (5)
  - Product use in unapproved indication [Unknown]
  - Product label issue [Unknown]
  - Sunburn [Not Recovered/Not Resolved]
  - Sunburn [Unknown]
  - Off label use [Unknown]

NARRATIVE: CASE EVENT DATE: 20190612
